FAERS Safety Report 13022966 (Version 1)
Quarter: 2016Q4

REPORT INFORMATION
  Report Type: Spontaneous
  Country: GB (occurrence: GB)
  Receive Date: 20161213
  Receipt Date: 20161213
  Transmission Date: 20170207
  Serious: Yes (Other)
  Sender: FDA-Public Use
  Company Number: GB-GLAXOSMITHKLINE-GB2016182146

PATIENT
  Age: 50 Year
  Sex: Female
  Weight: 82.55 kg

DRUGS (2)
  1. OMEPRAZOLE. [Concomitant]
     Active Substance: OMEPRAZOLE
     Dosage: 20 MG, UNK
  2. ORLISTAT [Suspect]
     Active Substance: ORLISTAT
     Indication: WEIGHT DECREASED
     Dosage: UNK, ONE TO BE TAKEN UP TO THREE TIMES A DAY
     Route: 048
     Dates: start: 20150910, end: 20161120

REACTIONS (6)
  - Photosensitivity reaction [Recovered/Resolved with Sequelae]
  - Fatigue [Recovering/Resolving]
  - Swelling face [Recovered/Resolved with Sequelae]
  - Blister [Recovered/Resolved with Sequelae]
  - Faeces discoloured [Recovered/Resolved]
  - Lymphadenopathy [Unknown]

NARRATIVE: CASE EVENT DATE: 20160719
